FAERS Safety Report 8682754 (Version 2)
Quarter: 2012Q4

REPORT INFORMATION
  Report Type: 
  Country: US (occurrence: US)
  Receive Date: 20120725
  Receipt Date: 20120911
  Transmission Date: 20130627
  Serious: Yes (Other)
  Sender: FDA-Public Use
  Company Number: PHEH2012US014324

PATIENT
  Sex: Female
  Weight: 86.17 kg

DRUGS (18)
  1. GILENYA [Suspect]
     Indication: MULTIPLE SCLEROSIS
     Dosage: 0.5 mg, QD
     Route: 048
     Dates: end: 20120720
  2. MORPHINE SULFATE [Concomitant]
     Dosage: 1 DF, QD
     Route: 048
  3. VITAMIN B [Concomitant]
     Dosage: 1 DF, QD
  4. TOPAMAX [Concomitant]
     Dosage: 100 mg, BID
     Route: 048
  5. FOLIC ACID [Concomitant]
     Dosage: 1 mg, QD
     Route: 048
  6. COLACE [Concomitant]
     Dosage: 1 DF, PRN
     Route: 048
  7. LYRICA [Concomitant]
     Dosage: 1 DF, BID
  8. SIMVASTATIN [Concomitant]
     Dosage: 1 DF, QD
     Route: 048
  9. BACLOFEN [Concomitant]
     Dosage: 1 DF, BID
     Route: 048
  10. CELEXA [Concomitant]
     Dosage: 20 mg, QD
     Route: 048
  11. SEROQUEL XR [Concomitant]
     Dosage: 1 DF, QD
     Route: 048
  12. ATENOLOL [Concomitant]
     Dosage: 1 DF, QD
     Route: 048
  13. TRAZODONE HYDROCHLORIDE [Concomitant]
     Dosage: 500 mg, QD
     Route: 048
  14. THIAMINE [Concomitant]
     Dosage: 100 mg, QD
  15. TRILEPTAL [Concomitant]
     Dosage: 300 mg, UNK
  16. MS CONTIN [Concomitant]
     Dosage: 60 mg, in the morning
  17. MS CONTIN [Concomitant]
     Dosage: 30 mg, in the afternoon
  18. MS CONTIN [Concomitant]
     Dosage: 60 mg, in the evening

REACTIONS (22)
  - Uveitis [Not Recovered/Not Resolved]
  - Vision blurred [Not Recovered/Not Resolved]
  - Multiple sclerosis relapse [Unknown]
  - Confusional state [Unknown]
  - Movement disorder [Unknown]
  - Cognitive disorder [Unknown]
  - Mental impairment [Unknown]
  - Speech disorder [Unknown]
  - Ataxia [Unknown]
  - Brain stem syndrome [Unknown]
  - Visual impairment [Unknown]
  - Dysphagia [Unknown]
  - Limb discomfort [Unknown]
  - Muscular weakness [Unknown]
  - Meralgia paraesthetica [Unknown]
  - Photophobia [Unknown]
  - Breakthrough pain [Unknown]
  - Fall [Unknown]
  - Pain in extremity [Unknown]
  - Constipation [Unknown]
  - Headache [Unknown]
  - Liver function test abnormal [Unknown]
